FAERS Safety Report 10166502 (Version 2)
Quarter: 2014Q2

REPORT INFORMATION
  Report Type: Spontaneous
  Country: US (occurrence: US)
  Receive Date: 20140512
  Receipt Date: 20140512
  Transmission Date: 20141212
  Serious: No
  Sender: FDA-Public Use
  Company Number: US-MYLANLABS-2014S1003417

PATIENT
  Age: 51 Year
  Sex: Male

DRUGS (6)
  1. MORPHINE SULFATE EXTENDED-RELEASE TABLETS [Suspect]
     Indication: PAIN
     Route: 048
     Dates: start: 201312
  2. MORPHINE SULFATE EXTENDED-RELEASE TABLETS [Suspect]
     Indication: PAIN
     Route: 048
     Dates: start: 201312
  3. PERCOCET [Concomitant]
  4. HALCION [Concomitant]
  5. TRAZODONE HCL [Concomitant]
  6. LIPITOR [Concomitant]

REACTIONS (1)
  - Hallucination, visual [Not Recovered/Not Resolved]
